FAERS Safety Report 7016550-8 (Version None)
Quarter: 2010Q3

REPORT INFORMATION
  Report Type: 
  Country: None (occurrence: None)
  Receive Date: 20100927
  Receipt Date: 20100920
  Transmission Date: 20110219
  Serious: Yes (Life-Threatening, Disabling, Other)
  Sender: FDA-Public Use
  Company Number: A0877887A

PATIENT
  Age: 67 Year
  Sex: Female

DRUGS (6)
  1. IMITREX [Suspect]
     Indication: HEADACHE
     Dosage: 25MG PER DAY
     Route: 048
     Dates: start: 20100713, end: 20100823
  2. LEXAPRO [Suspect]
     Indication: DEPRESSION
     Dosage: 20MG PER DAY
     Route: 048
  3. REMERON [Suspect]
     Indication: SLEEP DISORDER
     Dosage: 7.5MG AT NIGHT
     Route: 048
  4. TRAZODONE HCL [Suspect]
     Indication: SLEEP DISORDER
     Dosage: 50MG AT NIGHT
     Route: 048
     Dates: start: 20100713, end: 20100823
  5. RISPERDAL [Suspect]
     Indication: AGITATION
     Dosage: .25MG AT NIGHT
     Route: 048
  6. KEPPRA [Concomitant]
     Indication: PRODUCT USED FOR UNKNOWN INDICATION
     Dosage: 250MG TWICE PER DAY
     Route: 048

REACTIONS (7)
  - ACTIVITIES OF DAILY LIVING IMPAIRED [None]
  - COORDINATION ABNORMAL [None]
  - DRUG ADMINISTRATION ERROR [None]
  - DRUG EFFECT INCREASED [None]
  - DRUG PRESCRIBING ERROR [None]
  - INCOHERENT [None]
  - SERUM SEROTONIN INCREASED [None]
